FAERS Safety Report 21986540 (Version 1)
Quarter: 2023Q1

REPORT INFORMATION
  Report Type: Report from Study
  Country: MX (occurrence: MX)
  Receive Date: 20230213
  Receipt Date: 20230213
  Transmission Date: 20230418
  Serious: Yes (Death, Other)
  Sender: FDA-Public Use
  Company Number: MX-002147023-NVSC2023MX031922

PATIENT
  Age: 91 Year
  Sex: Female

DRUGS (1)
  1. EXELON [Suspect]
     Active Substance: RIVASTIGMINE TARTRATE
     Indication: Product used for unknown indication
     Dosage: 9.5 MG QD (PATCH 10 (CM2), 18 MG RIVASTIGMINE BASE)
     Route: 062
     Dates: start: 20221031

REACTIONS (1)
  - Death [Fatal]

NARRATIVE: CASE EVENT DATE: 20230113
